FAERS Safety Report 5643942-1 (Version None)
Quarter: 2008Q1

REPORT INFORMATION
  Report Type: 
  Country: None (occurrence: None)
  Receive Date: 20080226
  Receipt Date: 20080215
  Transmission Date: 20080703
  Serious: Yes (Other)
  Sender: FDA-Public Use
  Company Number: CHPA2008US03035

PATIENT
  Age: 27 Year
  Sex: Male

DRUGS (1)
  1. EXCEDRIN EXTRA STRENGTH (NCH)(CAFFEINE CITRATE, ACETYLSALICYLIC ACID, [Suspect]
     Dosage: 40 DF, ONCE/SINGLE, ORAL
     Route: 048
     Dates: start: 20080215

REACTIONS (2)
  - OVERDOSE [None]
  - VOMITING [None]
